FAERS Safety Report 5247635-4 (Version None)
Quarter: 2007Q1

REPORT INFORMATION
  Report Type: 
  Country: None (occurrence: None)
  Receive Date: 20070220
  Receipt Date: 20070210
  Transmission Date: 20070707
  Serious: Yes (Other)
  Sender: FDA-Public Use
  Company Number: 236455

PATIENT
  Sex: Female
  Weight: 100.2 kg

DRUGS (17)
  1. XOLAIR [Suspect]
     Indication: ASTHMA
     Dosage: UNK, 1/MONTH, SUBCUTANEOUS
     Route: 058
     Dates: start: 20060601
  2. GLYBURIDE [Concomitant]
  3. PLAVIX [Concomitant]
  4. LIPITOR [Concomitant]
  5. LISINOPRIL [Concomitant]
  6. METFORMIN HCL [Concomitant]
  7. LITHIUM (LITHIUM NOS) [Concomitant]
  8. DIAZEPAM [Concomitant]
  9. ISOSORBIDE (ISOSORBIDE NOS) [Concomitant]
  10. ZOLOFT [Concomitant]
  11. VERAPAMIL [Concomitant]
  12. PULMICORT [Concomitant]
  13. FORADIL [Concomitant]
  14. ALBUTEROL (ALBUTEROL/ALBUTEROL SULFATE) [Concomitant]
  15. NITROGLYCERIN [Concomitant]
  16. PREDNISONE TAB [Concomitant]
  17. MULTI-VITAMINS [Concomitant]

REACTIONS (10)
  - ACTIVITIES OF DAILY LIVING IMPAIRED [None]
  - ALOPECIA [None]
  - CONDITION AGGRAVATED [None]
  - DYSPNOEA [None]
  - EAR PAIN [None]
  - HEADACHE [None]
  - SINUSITIS [None]
  - SLEEP DISORDER [None]
  - TRANSIENT ISCHAEMIC ATTACK [None]
  - UPPER RESPIRATORY TRACT INFECTION [None]
